FAERS Safety Report 6920818-0 (Version None)
Quarter: 2010Q3

REPORT INFORMATION
  Report Type: 
  Country: None (occurrence: None)
  Receive Date: 20100812
  Receipt Date: 20100803
  Transmission Date: 20110219
  Serious: Yes (Other)
  Sender: FDA-Public Use
  Company Number: AU-ASTRAZENECA-2010SE25247

PATIENT
  Age: 21958 Day
  Sex: Female

DRUGS (9)
  1. ARIMIDEX [Suspect]
     Route: 048
     Dates: start: 20100527, end: 20100529
  2. METOPROLOL TARTRATE [Concomitant]
     Route: 048
     Dates: start: 20080101
  3. CRESTOR [Concomitant]
     Route: 048
     Dates: start: 20060101
  4. GLICLAZIDE [Concomitant]
  5. DIAMICRON [Concomitant]
     Route: 048
     Dates: start: 20040101
  6. LEVOTHYROXINE SODIUM [Concomitant]
     Route: 048
     Dates: start: 19960101
  7. METFORMIN HCL [Concomitant]
     Route: 048
     Dates: start: 20080101
  8. EUROXIG [Concomitant]
  9. PIROXICAM [Concomitant]
     Route: 048

REACTIONS (4)
  - AGGRESSION [None]
  - AGITATION [None]
  - HEADACHE [None]
  - NAUSEA [None]
